FAERS Safety Report 8340500 (Version 2)
Quarter: 2014Q2

REPORT INFORMATION
  Report Type: Spontaneous
  Country: US (occurrence: US)
  Receive Date: 20120117
  Receipt Date: 20140417
  Transmission Date: 20141212
  Serious: Yes (Other)
  Sender: FDA-Public Use
  Company Number: US-ROCHE-788622

PATIENT
  Age: 14 Year
  Sex: Male
  Weight: 54.48 kg

DRUGS (3)
  1. ACCUTANE [Suspect]
     Indication: ACNE
     Route: 065
     Dates: start: 20010824, end: 200203
  2. TETRACYCLINE [Concomitant]
     Indication: ACNE
  3. MINOCYCLINE [Concomitant]
     Indication: ACNE

REACTIONS (7)
  - Inflammatory bowel disease [Unknown]
  - Crohn^s disease [Unknown]
  - Emotional distress [Not Recovered/Not Resolved]
  - Intestinal haemorrhage [Unknown]
  - Intestinal obstruction [Unknown]
  - Cheilitis [Unknown]
  - Hyperlipidaemia [Unknown]
